FAERS Safety Report 5891420-7 (Version None)
Quarter: 2008Q3

REPORT INFORMATION
  Report Type: 
  Country: None (occurrence: None)
  Receive Date: 20080922
  Receipt Date: 20080916
  Transmission Date: 20090109
  Serious: Yes (Hospitalization)
  Sender: FDA-Public Use
  Company Number: US-MERCK-0809USA02541

PATIENT
  Age: 43 Year
  Sex: Male

DRUGS (7)
  1. ISENTRESS [Suspect]
     Indication: HIV INFECTION
     Route: 048
     Dates: start: 20080901
  2. TRUVADA [Concomitant]
     Route: 065
  3. NEXIUM [Concomitant]
     Route: 065
  4. PAXIL [Concomitant]
     Route: 065
  5. VERAPAMIL [Concomitant]
     Route: 065
  6. LIPITOR [Concomitant]
     Route: 065
  7. KLOR-CON [Concomitant]
     Route: 065

REACTIONS (6)
  - CONSTIPATION [None]
  - DIZZINESS [None]
  - HEADACHE [None]
  - NAUSEA [None]
  - PNEUMONIA [None]
  - VOMITING [None]
